FAERS Safety Report 23130689 (Version 1)
Quarter: 2023Q4

REPORT INFORMATION
  Report Type: Report from Study
  Country: CH (occurrence: CH)
  Receive Date: 20231031
  Receipt Date: 20231031
  Transmission Date: 20240109
  Serious: Yes (Death)
  Sender: FDA-Public Use
  Company Number: CH-JNJFOC-20231077210

PATIENT
  Age: 87 Year
  Sex: Female

DRUGS (2)
  1. HALDOL [Suspect]
     Active Substance: HALOPERIDOL
     Indication: Delirium
     Dosage: CUMULATIVE DOSE: 1 MG
     Route: 065
  2. PIPAMPERONE [Suspect]
     Active Substance: PIPAMPERONE
     Indication: Delirium
     Dosage: CUMULATIVE DOSE: 90 MG
     Route: 065

REACTIONS (1)
  - Aspiration [Fatal]
